FAERS Safety Report 5232229-7 (Version None)
Quarter: 2007Q1

REPORT INFORMATION
  Report Type: 
  Country: None (occurrence: None)
  Receive Date: 20070207
  Receipt Date: 20070126
  Transmission Date: 20070707
  Serious: Yes (Hospitalization)
  Sender: FDA-Public Use
  Company Number: IT-BAYER-200710734GDS

PATIENT
  Age: 59 Year
  Sex: Female
  Weight: 65 kg

DRUGS (1)
  1. SORAFENIB [Suspect]
     Indication: MESOTHELIOMA MALIGNANT
     Dosage: TOTAL DAILY DOSE: 800 MG
     Route: 048
     Dates: end: 20070121

REACTIONS (3)
  - BLOOD PHOSPHORUS DECREASED [None]
  - HYPOCALCAEMIA [None]
  - HYPOKALAEMIA [None]
